FAERS Safety Report 9325469 (Version 1)
Quarter: 2013Q2

REPORT INFORMATION
  Report Type: Spontaneous
  Country: US (occurrence: None)
  Receive Date: 20130531
  Receipt Date: 20130531
  Transmission Date: 20140414
  Serious: Yes (Hospitalization)
  Sender: FDA-Public Use
  Company Number: None

PATIENT
  Age: 57 Year
  Sex: Female

DRUGS (2)
  1. ALLOPURINOL [Suspect]
     Indication: GOUT
     Route: 048
     Dates: start: 20121230, end: 20130105
  2. ALLOPURINOL [Suspect]
     Indication: GOUT
     Route: 048
     Dates: start: 20121230, end: 20130105

REACTIONS (8)
  - Hypophagia [None]
  - Oral pain [None]
  - Insomnia [None]
  - Stevens-Johnson syndrome [None]
  - Upper airway obstruction [None]
  - Renal failure acute [None]
  - Necrosis [None]
  - Cellulitis [None]
